FAERS Safety Report 14887270 (Version 3)
Quarter: 2019Q1

REPORT INFORMATION
  Report Type: Spontaneous
  Country: US (occurrence: US)
  Receive Date: 20180513
  Receipt Date: 20190116
  Transmission Date: 20190417
  Serious: No
  Sender: FDA-Public Use
  Company Number: US-JNJFOC-20180428855

PATIENT
  Age: 80 Year
  Sex: Female
  Weight: 66.68 kg

DRUGS (12)
  1. SYNTHROID [Concomitant]
     Active Substance: LEVOTHYROXINE SODIUM
     Indication: THYROID DISORDER
     Route: 048
     Dates: start: 1988
  2. XARELTO [Suspect]
     Active Substance: RIVAROXABAN
     Indication: CEREBROVASCULAR ACCIDENT PROPHYLAXIS
     Route: 048
     Dates: start: 2014
  3. ATIVAN [Concomitant]
     Active Substance: LORAZEPAM
     Indication: DEPRESSION
     Route: 048
     Dates: start: 2016
  4. DILTIAZEM. [Concomitant]
     Active Substance: DILTIAZEM
     Indication: TRANSIENT ISCHAEMIC ATTACK
     Route: 048
     Dates: start: 2014
  5. XARELTO [Suspect]
     Active Substance: RIVAROXABAN
     Indication: ATRIAL FIBRILLATION
     Route: 048
     Dates: start: 2014
  6. ATIVAN [Concomitant]
     Active Substance: LORAZEPAM
     Indication: SEDATIVE THERAPY
     Route: 048
     Dates: start: 2016
  7. WELLBUTRIN [Concomitant]
     Active Substance: BUPROPION HYDROCHLORIDE
     Indication: SEDATIVE THERAPY
     Route: 048
     Dates: start: 2017
  8. DILTIAZEM. [Concomitant]
     Active Substance: DILTIAZEM
     Indication: CARDIAC DISORDER
     Route: 048
     Dates: start: 2014
  9. WELLBUTRIN [Concomitant]
     Active Substance: BUPROPION HYDROCHLORIDE
     Indication: DEPRESSION
     Route: 048
     Dates: start: 2017
  10. CALCIUM [Concomitant]
     Active Substance: CALCIUM
     Indication: MINERAL SUPPLEMENTATION
     Route: 048
  11. VITAMIN D [Concomitant]
     Active Substance: CHOLECALCIFEROL
     Indication: VITAMIN SUPPLEMENTATION
     Route: 048
  12. MIRALAX [Concomitant]
     Active Substance: POLYETHYLENE GLYCOL 3350
     Indication: IRRITABLE BOWEL SYNDROME
     Route: 048

REACTIONS (6)
  - Inappropriate schedule of product administration [Unknown]
  - Product lot number issue [Unknown]
  - Chronic obstructive pulmonary disease [Unknown]
  - Tooth disorder [Recovered/Resolved]
  - Fall [Unknown]
  - Weight increased [Not Recovered/Not Resolved]

NARRATIVE: CASE EVENT DATE: 2015
